FAERS Safety Report 5589649-0 (Version None)
Quarter: 2008Q1

REPORT INFORMATION
  Report Type: 
  Country: None (occurrence: None)
  Receive Date: 20080114
  Receipt Date: 20080103
  Transmission Date: 20080703
  Serious: Yes (Other)
  Sender: FDA-Public Use
  Company Number: B0361360A

PATIENT
  Age: 31 Year
  Sex: Female

DRUGS (1)
  1. PAROXETINE HYDROCHLORIDE [Suspect]
     Route: 065
     Dates: start: 19990424

REACTIONS (16)
  - AGGRESSION [None]
  - ANGER [None]
  - ANXIETY [None]
  - CRYING [None]
  - DEPRESSED MOOD [None]
  - DIARRHOEA [None]
  - DRUG WITHDRAWAL SYNDROME [None]
  - DYSPNOEA [None]
  - EMOTIONAL DISTRESS [None]
  - FATIGUE [None]
  - HEADACHE [None]
  - MALAISE [None]
  - MOOD SWINGS [None]
  - PARAESTHESIA [None]
  - SOMNOLENCE [None]
  - SUICIDAL IDEATION [None]
